FAERS Safety Report 8662689 (Version 3)
Quarter: 2013Q2

REPORT INFORMATION
  Report Type: Spontaneous
  Country: JP (occurrence: JP)
  Receive Date: 20120712
  Receipt Date: 20130423
  Transmission Date: 20140414
  Serious: Yes (Death)
  Sender: FDA-Public Use
  Company Number: JP-ELI_LILLY_AND_COMPANY-JP201207002063

PATIENT
  Age: 79 Year
  Sex: Female

DRUGS (3)
  1. ALIMTA [Suspect]
     Indication: BRONCHIOLOALVEOLAR CARCINOMA
     Dosage: 500 MG/M2, UNK
     Route: 042
     Dates: start: 20100917
  2. FOLIC ACID [Concomitant]
  3. VITAMIN B12                        /00056201/ [Concomitant]

REACTIONS (2)
  - Interstitial lung disease [Fatal]
  - Rash [Recovered/Resolved]
